FAERS Safety Report 10767858 (Version 3)
Quarter: 2015Q1

REPORT INFORMATION
  Report Type: Spontaneous
  Country: DE (occurrence: DE)
  Receive Date: 20150205
  Receipt Date: 20150318
  Transmission Date: 20150721
  Serious: Yes (Death, Hospitalization)
  Sender: FDA-Public Use
  Company Number: DE-SA-2015SA011208

PATIENT
  Age: 77 Year
  Sex: Female

DRUGS (14)
  1. METFORMIN [Concomitant]
     Active Substance: METFORMIN HYDROCHLORIDE
  2. WARFARIN [Concomitant]
     Active Substance: WARFARIN
     Route: 048
  3. DRONEDARONE [Suspect]
     Active Substance: DRONEDARONE
     Indication: ATRIAL FIBRILLATION
     Route: 065
     Dates: start: 20130601, end: 20130714
  4. DIGITALIS [Concomitant]
     Active Substance: DIGITALIS
  5. HYDROCHLOROTHIAZIDE. [Concomitant]
     Active Substance: HYDROCHLOROTHIAZIDE
  6. CANDESARTAN [Concomitant]
     Active Substance: CANDESARTAN
  7. TOREM [Concomitant]
     Active Substance: TORSEMIDE
  8. ACTRAPID [Concomitant]
     Active Substance: INSULIN HUMAN
     Route: 058
  9. METOPROLOL SUCCINATE. [Concomitant]
     Active Substance: METOPROLOL SUCCINATE
  10. ACTRAPHANE [Concomitant]
     Active Substance: INSULIN HUMAN
     Route: 058
  11. PROPAFENONE. [Concomitant]
     Active Substance: PROPAFENONE
     Dates: end: 201305
  12. SIMVASTATIN. [Concomitant]
     Active Substance: SIMVASTATIN
  13. ASPIRIN. [Concomitant]
     Active Substance: ASPIRIN
  14. PHENPROCOUMON [Concomitant]
     Active Substance: PHENPROCOUMON

REACTIONS (15)
  - General physical health deterioration [Fatal]
  - Pyrexia [Fatal]
  - Rash maculo-papular [Fatal]
  - Hypoalbuminaemia [Fatal]
  - Blister [Fatal]
  - Mucosal ulceration [Fatal]
  - Alanine aminotransferase increased [Fatal]
  - Multi-organ failure [Fatal]
  - Nikolsky^s sign [Fatal]
  - C-reactive protein increased [Fatal]
  - Toxic epidermal necrolysis [Fatal]
  - Procalcitonin increased [Fatal]
  - Aspartate aminotransferase increased [Fatal]
  - Epidermolysis [Fatal]
  - Acute kidney injury [Fatal]

NARRATIVE: CASE EVENT DATE: 20130610
